FAERS Safety Report 4357103-X (Version None)
Quarter: 2004Q2

REPORT INFORMATION
  Report Type: 
  Country: None (occurrence: None)
  Receive Date: 20040507
  Receipt Date: 20040427
  Transmission Date: 20050107
  Serious: Yes (Death, Hospitalization)
  Sender: FDA-Public Use
  Company Number: 2004028425

PATIENT
  Age: 91 Year
  Sex: Female

DRUGS (8)
  1. AMLODIPINE [Suspect]
     Indication: ESSENTIAL HYPERTENSION
     Dosage: ORAL
     Route: 048
     Dates: start: 20030904, end: 20040104
  2. METRONIDAZOLE [Suspect]
     Indication: ILL-DEFINED DISORDER
     Dates: start: 20031114, end: 20031228
  3. FOLIC ACID [Suspect]
     Indication: ILL-DEFINED DISORDER
     Dosage: ORAL
     Route: 048
     Dates: start: 20030904, end: 20040104
  4. ALUMINUM MAGNESIUM SILICATE (ALUMINUM MAGNESIUM SILICATE) [Suspect]
     Indication: ILL-DEFINED DISORDER
     Dates: start: 20031226, end: 20040102
  5. FERROUS SULFATE TAB [Suspect]
     Indication: ILL-DEFINED DISORDER
     Dosage: ORAL
     Route: 048
     Dates: start: 20030905, end: 20040104
  6. MORPHINE SULFATE [Suspect]
     Indication: ILL-DEFINED DISORDER
     Dosage: ORAL
     Route: 048
     Dates: start: 20030904, end: 20040104
  7. RIFAMPICIN [Concomitant]
  8. CIPROFLOXACIN [Concomitant]

REACTIONS (3)
  - CLOSTRIDIUM COLITIS [None]
  - OSTEITIS [None]
  - THROMBOCYTOPENIA [None]
